FAERS Safety Report 6286732-1 (Version None)
Quarter: 2009Q3

REPORT INFORMATION
  Report Type: 
  Country: None (occurrence: None)
  Receive Date: 20090728
  Receipt Date: 20090327
  Transmission Date: 20100115
  Serious: Yes (Other)
  Sender: FDA-Public Use
  Company Number: US-PFIZER INC-2009193299

PATIENT
  Sex: Male
  Weight: 63.492 kg

DRUGS (5)
  1. VIAGRA [Interacting]
     Indication: ERECTILE DYSFUNCTION
     Dosage: 50 MG, UNK
     Dates: start: 20050101, end: 20060101
  2. XALATAN [Suspect]
     Indication: GLAUCOMA
     Dosage: UNK
     Dates: start: 20000101
  3. CIALIS [Interacting]
     Indication: ERECTILE DYSFUNCTION
     Dosage: UNK
     Dates: end: 20060101
  4. PANCREASE [Concomitant]
     Dosage: UNK
  5. LIBRIUM [Concomitant]
     Dosage: UNK

REACTIONS (3)
  - BLINDNESS UNILATERAL [None]
  - CATARACT OPERATION [None]
  - MACULAR DEGENERATION [None]
